FAERS Safety Report 7751171-0 (Version None)
Quarter: 2011Q3

REPORT INFORMATION
  Report Type: 
  Country: None (occurrence: None)
  Receive Date: 20110914
  Receipt Date: 20070329
  Transmission Date: 20111222
  Serious: Yes (Other)
  Sender: FDA-Public Use
  Company Number: PHHY2007NL03749

PATIENT
  Sex: Male

DRUGS (2)
  1. SANDOSTATIN LAR [Suspect]
     Indication: POST GASTRIC SURGERY SYNDROME
     Dosage: 10 MG, ONCE PER 3 WEEKS
     Dates: start: 20050425
  2. SANDOSTATIN LAR [Suspect]
     Dosage: 10 MG, ONCE PER 3 WEEKS
     Dates: start: 20080904

REACTIONS (2)
  - MALAISE [None]
  - METASTASES TO BONE [None]
